FAERS Safety Report 14890437 (Version 1)
Quarter: 2018Q2

REPORT INFORMATION
  Report Type: Spontaneous
  Country: IT (occurrence: IT)
  Receive Date: 20180514
  Receipt Date: 20180514
  Transmission Date: 20180711
  Serious: Yes (Other)
  Sender: FDA-Public Use
  Company Number: IT-TEVA-2018-IT-891292

PATIENT
  Age: 74 Year
  Sex: Female

DRUGS (3)
  1. TAMOXIFEN [Suspect]
     Active Substance: TAMOXIFEN
     Indication: BREAST NEOPLASM
     Route: 048
  2. COMBISARTAN [Concomitant]
     Active Substance: HYDROCHLOROTHIAZIDE\VALSARTAN
  3. VERTISERC [Concomitant]
     Active Substance: BETAHISTINE HYDROCHLORIDE
     Route: 065

REACTIONS (3)
  - Balance disorder [Unknown]
  - Vomiting [Unknown]
  - Hyperhidrosis [Unknown]
